FAERS Safety Report 9619348 (Version 2)
Quarter: 2013Q4

REPORT INFORMATION
  Report Type: Report from Study
  Country: US (occurrence: US)
  Receive Date: 20131014
  Receipt Date: 20131119
  Transmission Date: 20140711
  Serious: Yes (Death, Hospitalization)
  Sender: FDA-Public Use
  Company Number: US-ALEXION PHARMACEUTICALS INC.-A201302593

PATIENT
  Age: 80 Year
  Sex: Male
  Weight: 72 kg

DRUGS (8)
  1. SOLIRIS [Suspect]
     Indication: PAROXYSMAL NOCTURNAL HAEMOGLOBINURIA
     Dosage: 600 MG, UNK
     Route: 042
     Dates: start: 20130218
  2. SOLIRIS [Suspect]
     Dosage: 900 MG, Q2W
     Route: 042
     Dates: start: 20130318, end: 20130802
  3. PEPCID [Concomitant]
     Dosage: 40 MG, QD
     Route: 048
  4. FOLIC ACID [Concomitant]
     Dosage: 1 MG, QD
     Route: 048
  5. LASIX [Concomitant]
     Dosage: 40 MG, QD
     Route: 048
  6. COMBIVENT [Concomitant]
     Dosage: 1 PUFF QID
     Route: 048
  7. PREDNISONE [Concomitant]
     Dosage: 20 MG, QD
     Route: 048
  8. INSULIN [Concomitant]
     Dosage: SLIDING SCALE

REACTIONS (3)
  - Death [Fatal]
  - Streptococcal bacteraemia [Recovered/Resolved]
  - Endocarditis [Recovered/Resolved]
